FAERS Safety Report 10428815 (Version 3)
Quarter: 2014Q3

REPORT INFORMATION
  Report Type: Spontaneous
  Country: DE (occurrence: DE)
  Receive Date: 20140904
  Receipt Date: 20140924
  Transmission Date: 20150326
  Serious: Yes (Death, Life-Threatening, Hospitalization, Disabling, Congenital Anomaly, Other)
  Sender: FDA-Public Use
  Company Number: DE-AUROBINDO-AUR-APL-2013-10795

PATIENT
  Sex: Female
  Weight: 3.9 kg

DRUGS (7)
  1. CANDESARTAN AUROBINDO TABLETTEN 4 MG V [Suspect]
     Active Substance: CANDESARTAN
     Indication: HYPERTENSION
     Dosage: UNK UNK,UNK,
     Route: 064
  2. LOSARTAN [Suspect]
     Active Substance: LOSARTAN
     Indication: HYPERTENSION
     Route: 064
  3. METOPROLOL AUROBINDO FILMTABLETTEN 100 MG [Suspect]
     Active Substance: METOPROLOL
     Indication: HYPERTENSION
     Dosage: 100 MG,UNK,
     Route: 064
     Dates: start: 20130610
  4. METOPROLOL AUROBINDO FILMTABLETTEN 100 MG [Suspect]
     Active Substance: METOPROLOL
     Dosage: 200 MG,UNK,
     Route: 064
     Dates: start: 20130705
  5. PRESINOL [Concomitant]
     Active Substance: METHYLDOPA
     Indication: PRODUCT USED FOR UNKNOWN INDICATION
     Route: 064
  6. METOPROLOL TARTRATE AND HYDROCHLOROTHIAZIDE [Suspect]
     Active Substance: HYDROCHLOROTHIAZIDE\METOPROLOL TARTRATE
     Indication: PRODUCT USED FOR UNKNOWN INDICATION
     Dosage: 100 MG, DAILY
     Route: 064
     Dates: start: 20130610
  7. METOPROLOL TARTRATE AND HYDROCHLOROTHIAZIDE [Suspect]
     Active Substance: HYDROCHLOROTHIAZIDE\METOPROLOL TARTRATE
     Dosage: 200 MG, UNK
     Route: 064
     Dates: start: 20130705

REACTIONS (10)
  - Renal failure acute [Unknown]
  - Renal hypertrophy [Unknown]
  - Hyperkalaemia [Unknown]
  - Renal failure neonatal [Unknown]
  - Foetal exposure during pregnancy [Unknown]
  - Renal infarct [Unknown]
  - Vena cava thrombosis [Unknown]
  - Cerebral infarction [Unknown]
  - Atrial septal defect [Unknown]
  - Anuria [Unknown]

NARRATIVE: CASE EVENT DATE: 20131128
